FAERS Safety Report 16701725 (Version 2)
Quarter: 2019Q4

REPORT INFORMATION
  Report Type: Spontaneous
  Country: JP (occurrence: JP)
  Receive Date: 20190814
  Receipt Date: 20191101
  Transmission Date: 20200122
  Serious: No
  Sender: FDA-Public Use
  Company Number: JP-BAYER-2019-147911

PATIENT
  Age: 23 Year
  Sex: Female

DRUGS (1)
  1. YAZ [Suspect]
     Active Substance: DROSPIRENONE\ETHINYL ESTRADIOL
     Dosage: UNK
     Route: 048
     Dates: start: 201306, end: 20190602

REACTIONS (6)
  - Haemangioma of liver [Unknown]
  - Aspartate aminotransferase increased [None]
  - Hepatic steatosis [Unknown]
  - Hepatic function abnormal [None]
  - Alanine aminotransferase increased [None]
  - Gamma-glutamyltransferase increased [None]
